FAERS Safety Report 9167991 (Version 1)
Quarter: 2013Q1

REPORT INFORMATION
  Report Type: Spontaneous
  Country: US (occurrence: US)
  Receive Date: 20130318
  Receipt Date: 20130318
  Transmission Date: 20140127
  Serious: No
  Sender: FDA-Public Use
  Company Number: US-TEVA-391865USA

PATIENT
  Age: 14 Year
  Sex: Male
  Weight: 57.2 kg

DRUGS (3)
  1. QNASL [Suspect]
     Indication: HYPERSENSITIVITY
     Dosage: 320 MCG DAILY
     Dates: start: 20130309
  2. PSEUDOEPHEDRINE [Concomitant]
  3. ZYRTEC [Concomitant]
     Dosage: 10 MILLIGRAM DAILY;

REACTIONS (2)
  - Pain [Not Recovered/Not Resolved]
  - Drug ineffective [Unknown]
